FAERS Safety Report 23497919 (Version 3)
Quarter: 2024Q3

REPORT INFORMATION
  Report Type: Spontaneous
  Country: US (occurrence: US)
  Receive Date: 20240207
  Receipt Date: 20240830
  Transmission Date: 20241016
  Serious: No
  Sender: ROCHE
  Company Number: US-ROCHE-3314674

PATIENT
  Age: 29 Year
  Sex: Female

DRUGS (4)
  1. XOLAIR [Suspect]
     Active Substance: OMALIZUMAB
     Indication: Urticaria
     Dosage: 150MG/1ML
     Route: 058
     Dates: start: 202010
  2. XOLAIR [Suspect]
     Active Substance: OMALIZUMAB
  3. JUNEL FE 24 [Concomitant]
     Active Substance: ETHINYL ESTRADIOL\NORETHINDRONE ACETATE
     Indication: Contraception
     Route: 048
  4. ALLOPURINOL [Concomitant]
     Active Substance: ALLOPURINOL
     Route: 048

REACTIONS (6)
  - Needle issue [Unknown]
  - Pain [Unknown]
  - Product use complaint [Unknown]
  - Wrong technique in device usage process [Unknown]
  - Exposure via skin contact [Unknown]
  - Off label use [Unknown]

NARRATIVE: CASE EVENT DATE: 20240721
